FAERS Safety Report 24611828 (Version 1)
Quarter: 2024Q4

REPORT INFORMATION
  Report Type: Report from Study
  Country: US (occurrence: US)
  Receive Date: 20241113
  Receipt Date: 20241113
  Transmission Date: 20250115
  Serious: Yes (Other)
  Sender: ABBVIE
  Company Number: US-ABBVIE-5999696

PATIENT
  Age: 59 Year
  Sex: Female

DRUGS (2)
  1. SKYRIZI [Suspect]
     Active Substance: RISANKIZUMAB-RZAA
     Indication: Psoriasis
     Route: 058
     Dates: start: 2024
  2. COSENTYX [Concomitant]
     Active Substance: SECUKINUMAB
     Indication: Psoriasis
     Dates: start: 2021

REACTIONS (2)
  - Irritable bowel syndrome [Recovered/Resolved]
  - Muscle atrophy [Unknown]

NARRATIVE: CASE EVENT DATE: 20240101
